FAERS Safety Report 8610445-1 (Version None)
Quarter: 2012Q3

REPORT INFORMATION
  Report Type: 
  Country: None (occurrence: None)
  Receive Date: 20120822
  Receipt Date: 20120817
  Transmission Date: 20120928
  Serious: No
  Sender: FDA-Public Use
  Company Number: US-PFIZER INC-2012202732

PATIENT
  Age: 54 Year
  Sex: Female
  Weight: 77.098 kg

DRUGS (5)
  1. CRESTOR [Concomitant]
     Indication: BLOOD CHOLESTEROL ABNORMAL
     Dosage: 2 MG, DAILY
     Dates: start: 20080101
  2. PRISTIQ [Suspect]
     Indication: DEPRESSION
     Dosage: UNK
     Dates: start: 20110101, end: 20120815
  3. METFORMIN [Concomitant]
     Indication: DIABETES MELLITUS
     Dosage: 500 MG, 4X/DAY
  4. ACTOS [Concomitant]
     Indication: DIABETES MELLITUS
     Dosage: UNK
  5. LISINOPRIL [Concomitant]
     Indication: HYPERTENSION
     Dosage: 10/12.5MG , UNK
     Dates: start: 20080101

REACTIONS (2)
  - NAUSEA [None]
  - DIZZINESS [None]
